FAERS Safety Report 20665455 (Version 1)
Quarter: 2022Q2

REPORT INFORMATION
  Report Type: Spontaneous
  Country: CN (occurrence: None)
  Receive Date: 20220402
  Receipt Date: 20220402
  Transmission Date: 20220721
  Serious: Yes (Other)
  Sender: FDA-Public Use
  Company Number: CN-ROCHE-3064203

PATIENT
  Age: 58 Year
  Sex: Female

DRUGS (1)
  1. TRASTUZUMAB [Suspect]
     Active Substance: TRASTUZUMAB
     Indication: Breast cancer
     Route: 065
     Dates: start: 20220318

REACTIONS (4)
  - Hepatic function abnormal [Unknown]
  - Pruritus [Unknown]
  - Jaundice [Unknown]
  - Bile duct stenosis [Unknown]

NARRATIVE: CASE EVENT DATE: 20220319
